FAERS Safety Report 9247190 (Version 6)
Quarter: 2013Q3

REPORT INFORMATION
  Report Type: Spontaneous
  Country: US (occurrence: US)
  Receive Date: 20130423
  Receipt Date: 20130812
  Transmission Date: 20140515
  Serious: No
  Sender: FDA-Public Use
  Company Number: US-BIOGENIDEC-2013BI035577

PATIENT
  Age: 67 Year
  Sex: Female

DRUGS (1)
  1. TYSABRI [Suspect]
     Indication: MULTIPLE SCLEROSIS
     Route: 042
     Dates: start: 20121205

REACTIONS (37)
  - Weight decreased [Recovered/Resolved]
  - Procedural pain [Unknown]
  - Intervertebral disc protrusion [Not Recovered/Not Resolved]
  - Muscle atrophy [Not Recovered/Not Resolved]
  - Vertigo [Not Recovered/Not Resolved]
  - Diarrhoea [Recovered/Resolved]
  - Skin lesion [Unknown]
  - Pain [Not Recovered/Not Resolved]
  - Myalgia [Unknown]
  - Decreased appetite [Recovered/Resolved]
  - Abdominal discomfort [Unknown]
  - Spinal disorder [Unknown]
  - Sneezing [Not Recovered/Not Resolved]
  - Insomnia [Unknown]
  - Eye swelling [Not Recovered/Not Resolved]
  - Back pain [Recovered/Resolved]
  - Cough [Not Recovered/Not Resolved]
  - Seasonal allergy [Unknown]
  - Abdominal pain upper [Recovered/Resolved]
  - Wheezing [Not Recovered/Not Resolved]
  - Medical device complication [Recovered/Resolved]
  - Palmar erythema [Recovered/Resolved]
  - Musculoskeletal disorder [Recovered/Resolved]
  - Pain in jaw [Recovered/Resolved]
  - Aphasia [Recovered/Resolved]
  - Aphagia [Recovered/Resolved]
  - Facial pain [Recovered/Resolved]
  - Injection site mass [Unknown]
  - Dyspnoea [Not Recovered/Not Resolved]
  - Alopecia [Not Recovered/Not Resolved]
  - Fatigue [Not Recovered/Not Resolved]
  - Pruritus [Recovered/Resolved]
  - Dizziness [Recovered/Resolved]
  - Infusion site bruising [Recovered/Resolved]
  - Chest pain [Unknown]
  - Arthralgia [Recovered/Resolved]
  - Hepatic enzyme increased [Recovered/Resolved]
